FAERS Safety Report 5872425-9 (Version None)
Quarter: 2008Q3

REPORT INFORMATION
  Report Type: 
  Country: None (occurrence: None)
  Receive Date: 20080905
  Receipt Date: 20080826
  Transmission Date: 20090109
  Serious: Yes (Hospitalization)
  Sender: FDA-Public Use
  Company Number: PHHY2008FR19331

PATIENT
  Sex: Female

DRUGS (5)
  1. LESCOL [Suspect]
     Indication: HYPERCHOLESTEROLAEMIA
     Dosage: 20 MG/DAY
     Route: 048
     Dates: start: 20060518, end: 20060520
  2. ZYLORIC [Suspect]
     Indication: HYPERURICAEMIA
     Dosage: 100 MG/DAY
     Route: 048
     Dates: start: 20060228, end: 20060401
  3. IRBESARTAN [Concomitant]
     Dosage: 300 MG/DAY
     Route: 048
     Dates: end: 20060530
  4. LASIX [Concomitant]
     Dosage: 20 MG/DAY
     Route: 048
     Dates: end: 20060530
  5. ASPIRIN [Concomitant]
     Dosage: 75 MG/DAY
     Route: 048
     Dates: end: 20060530

REACTIONS (13)
  - CHILLS [None]
  - CYTOMEGALOVIRUS TEST POSITIVE [None]
  - DRUG RASH WITH EOSINOPHILIA AND SYSTEMIC SYMPTOMS [None]
  - EOSINOPHILIA [None]
  - EPSTEIN-BARR VIRUS ANTIBODY POSITIVE [None]
  - LIVER DISORDER [None]
  - LYMPHOMATOID PAPULOSIS [None]
  - NIGHT SWEATS [None]
  - PYREXIA [None]
  - RASH [None]
  - RENAL FAILURE ACUTE [None]
  - TOXOPLASMA SEROLOGY POSITIVE [None]
  - VASCULITIS [None]
